FAERS Safety Report 15183331 (Version 2)
Quarter: 2018Q3

REPORT INFORMATION
  Report Type: Spontaneous
  Country: FR (occurrence: FR)
  Receive Date: 20180723
  Receipt Date: 20180820
  Transmission Date: 20181010
  Serious: Yes (Other)
  Sender: FDA-Public Use
  Company Number: FR-MERCK KGAA-2052598

PATIENT
  Age: 72 Year
  Sex: Female

DRUGS (9)
  1. NOVOTHYROX [Suspect]
     Active Substance: LEVOTHYROXINE SODIUM
     Dates: end: 201807
  2. ENDOTELON [Concomitant]
     Active Substance: HERBALS
     Dates: start: 1992
  3. EFFERALGAN [Concomitant]
     Active Substance: ACETAMINOPHEN
  4. ALDACTONE [Concomitant]
     Active Substance: SPIRONOLACTONE
     Dates: start: 2017
  5. NOVOTHYROX [Suspect]
     Active Substance: LEVOTHYROXINE SODIUM
     Indication: PRODUCT USED FOR UNKNOWN INDICATION
     Dates: start: 2017
  6. LASILIX [Concomitant]
     Active Substance: FUROSEMIDE
     Dates: start: 1994
  7. NOOTROPYL [Concomitant]
     Active Substance: PIRACETAM
     Dates: start: 1992
  8. TANGANIL [Concomitant]
     Active Substance: ACETYLLEUCINE
  9. PIASCLEDINE [Concomitant]
     Active Substance: AVOCADO OIL\SOYBEAN OIL

REACTIONS (13)
  - Hot flush [Not Recovered/Not Resolved]
  - Arrhythmia [Recovered/Resolved]
  - Vertigo [Not Recovered/Not Resolved]
  - Amnesia [Recovered/Resolved]
  - Alopecia [Not Recovered/Not Resolved]
  - Dizziness [Recovered/Resolved]
  - Nervousness [Recovering/Resolving]
  - Blood pressure fluctuation [Recovered/Resolved]
  - Anxiety [Recovering/Resolving]
  - Tinnitus [Recovering/Resolving]
  - Blood thyroid stimulating hormone abnormal [Not Recovered/Not Resolved]
  - Insomnia [Recovered/Resolved]
  - Myalgia [None]

NARRATIVE: CASE EVENT DATE: 2017
